FAERS Safety Report 22182112 (Version 1)
Quarter: 2023Q2

REPORT INFORMATION
  Report Type: Spontaneous
  Country: US (occurrence: None)
  Receive Date: 20230405
  Receipt Date: 20230405
  Transmission Date: 20230721
  Serious: No
  Sender: FDA-Public Use
  Company Number: None

PATIENT
  Age: 52 Year
  Sex: Male

DRUGS (1)
  1. XELODA [Suspect]
     Active Substance: CAPECITABINE
     Dosage: FREQUENCY : TWICE A DAY;?
     Route: 048
     Dates: start: 20230320

REACTIONS (4)
  - Full blood count decreased [None]
  - Haemoglobin decreased [None]
  - Haemorrhage [None]
  - Incorrect dose administered [None]

NARRATIVE: CASE EVENT DATE: 20230404
